FAERS Safety Report 6968493-3 (Version None)
Quarter: 2010Q3

REPORT INFORMATION
  Report Type: 
  Country: None (occurrence: None)
  Receive Date: 20100907
  Receipt Date: 20100902
  Transmission Date: 20110219
  Serious: Yes (Hospitalization, Other)
  Sender: FDA-Public Use
  Company Number: PHHO2010TW12081

PATIENT
  Sex: Female
  Weight: 39 kg

DRUGS (4)
  1. AFINITOR [Suspect]
     Indication: GASTRIC CANCER
     Dosage: NO TREATMENT
  2. AFINITOR [Suspect]
     Dosage: DOUBLE BLIND
     Route: 048
     Dates: start: 20100812, end: 20100815
  3. AFINITOR [Suspect]
     Dosage: DOUBLE BLIND
     Route: 048
     Dates: start: 20100825, end: 20100830
  4. FLURBIPROFEN [Concomitant]
     Indication: PAIN

REACTIONS (7)
  - ASTHENIA [None]
  - DYSPNOEA [None]
  - HYPERTENSION [None]
  - LOCAL SWELLING [None]
  - LYMPHOEDEMA [None]
  - PYREXIA [None]
  - URINARY TRACT INFECTION [None]
